FAERS Safety Report 5321811-4 (Version None)
Quarter: 2007Q2

REPORT INFORMATION
  Report Type: 
  Country: None (occurrence: None)
  Receive Date: 20070510
  Receipt Date: 20070503
  Transmission Date: 20071010
  Serious: Yes (Hospitalization, Other)
  Sender: FDA-Public Use
  Company Number: AU-GENENTECH-241064

PATIENT
  Sex: Male

DRUGS (5)
  1. MABTHERA [Suspect]
     Indication: RHEUMATOID ARTHRITIS
     Dosage: 1000 MG, UNK
     Route: 042
     Dates: start: 20070330, end: 20070413
  2. METHOTREXATE [Concomitant]
     Indication: RHEUMATOID ARTHRITIS
     Dosage: 25 MG, 1/WEEK
     Route: 058
     Dates: start: 20000831
  3. PREDNISOLONE [Concomitant]
     Indication: RHEUMATOID ARTHRITIS
     Dosage: 5 MG, QD
     Route: 048
     Dates: start: 20001005
  4. FOSAMAX PLUS D [Concomitant]
     Indication: OSTEOPOROSIS
     Dosage: 15 MG, QD
     Route: 048
     Dates: start: 20061120
  5. PANTOPRAZOLE SODIUM [Concomitant]
     Indication: DYSPNOEA
     Dosage: 20 MG, QD
     Route: 048
     Dates: start: 20061120

REACTIONS (2)
  - DIARRHOEA [None]
  - GASTROENTERITIS [None]
